FAERS Safety Report 6565917-0 (Version None)
Quarter: 2010Q1

REPORT INFORMATION
  Report Type: 
  Country: None (occurrence: None)
  Receive Date: 20100129
  Receipt Date: 20100129
  Transmission Date: 20100710
  Serious: No
  Sender: FDA-Public Use
  Company Number: None

PATIENT
  Age: 29 Year
  Sex: Female
  Weight: 73.0291 kg

DRUGS (2)
  1. TYLENOL (CAPLET) [Suspect]
     Indication: DYSMENORRHOEA
     Dosage: 2 2 OR MORE WEEK PO
     Route: 048
     Dates: start: 20090820, end: 20100107
  2. TYLENOL (CAPLET) [Suspect]
     Indication: HEADACHE
     Dosage: 2 2 OR MORE WEEK PO
     Route: 048
     Dates: start: 20090820, end: 20100107

REACTIONS (4)
  - ABDOMINAL PAIN [None]
  - CHILLS [None]
  - DIZZINESS [None]
  - NAUSEA [None]
